FAERS Safety Report 11109799 (Version 1)
Quarter: 2015Q2

REPORT INFORMATION
  Report Type: Spontaneous
  Country: US (occurrence: US)
  Receive Date: 20150513
  Receipt Date: 20150513
  Transmission Date: 20150821
  Serious: No
  Sender: FDA-Public Use
  Company Number: US-009507513-1504USA002941

PATIENT

DRUGS (1)
  1. NEXPLANON [Suspect]
     Active Substance: ETONOGESTREL
     Dosage: 1 ROD/ THREE YEARS (STRENGTH: 68 MG)
     Route: 059
     Dates: start: 201503

REACTIONS (4)
  - Product quality issue [Unknown]
  - Device difficult to use [Unknown]
  - No adverse event [Unknown]
  - Device dislocation [Unknown]

NARRATIVE: CASE EVENT DATE: 2015
